FAERS Safety Report 13587444 (Version 2)
Quarter: 2017Q2

REPORT INFORMATION
  Report Type: Report from Study
  Country: US (occurrence: US)
  Receive Date: 20170526
  Receipt Date: 20170606
  Transmission Date: 20170830
  Serious: Yes (Hospitalization)
  Sender: FDA-Public Use
  Company Number: US-ACTELION-A-US2017-154361

PATIENT
  Age: 79 Year
  Sex: Male
  Weight: 82.54 kg

DRUGS (1)
  1. OPSUMIT [Suspect]
     Active Substance: MACITENTAN
     Indication: PULMONARY ARTERIAL HYPERTENSION
     Dosage: 10 MG, QD
     Route: 048

REACTIONS (5)
  - Dyspnoea [Unknown]
  - Asthenia [Unknown]
  - Diarrhoea [Unknown]
  - Pneumonia [Unknown]
  - Bronchitis [Unknown]
